FAERS Safety Report 18960153 (Version 7)
Quarter: 2023Q2

REPORT INFORMATION
  Report Type: Report from Study
  Country: BR (occurrence: BR)
  Receive Date: 20210302
  Receipt Date: 20230524
  Transmission Date: 20230722
  Serious: Yes (Hospitalization, Disabling, Other)
  Sender: FDA-Public Use
  Company Number: BR-TAKEDA-BR201724236

PATIENT
  Age: 18 Year
  Sex: Male
  Weight: 27 kg

DRUGS (6)
  1. IDURSULFASE [Suspect]
     Active Substance: IDURSULFASE
     Indication: Mucopolysaccharidosis II
     Dosage: UNK UNK, 1/WEEK
     Route: 042
     Dates: start: 20151218
  2. IDURSULFASE [Suspect]
     Active Substance: IDURSULFASE
     Dosage: 4 DOSAGE FORM, 1/WEEK
     Route: 042
  3. IDURSULFASE [Suspect]
     Active Substance: IDURSULFASE
     Dosage: 2 DOSAGE FORM
     Route: 042
  4. IDURSULFASE [Suspect]
     Active Substance: IDURSULFASE
     Dosage: 3 DOSAGE FORM
     Route: 042
  5. DIMETHICONE [Suspect]
     Active Substance: DIMETHICONE
     Indication: Flatulence
     Dosage: UNK
     Route: 065
  6. PERICIAZINE [Concomitant]
     Active Substance: PERICIAZINE
     Indication: Sleep disorder
     Dosage: 15 GTT DROPS, QD
     Route: 048

REACTIONS (19)
  - Haemorrhage [Recovered/Resolved]
  - Endotracheal intubation complication [Recovered/Resolved]
  - Near death experience [Recovered/Resolved]
  - Respiratory failure [Recovered/Resolved]
  - Loss of personal independence in daily activities [Unknown]
  - Gait inability [Unknown]
  - Procedural complication [Recovered/Resolved]
  - Muscle atrophy [Recovered/Resolved]
  - Weight increased [Unknown]
  - Secretion discharge [Recovered/Resolved]
  - Mobility decreased [Not Recovered/Not Resolved]
  - Fear of injection [Unknown]
  - Pain [Unknown]
  - Illness [Unknown]
  - Abdominal discomfort [Unknown]
  - Infection [Unknown]
  - Fatigue [Unknown]
  - Hypersensitivity [Unknown]
  - Influenza [Recovered/Resolved]

NARRATIVE: CASE EVENT DATE: 20210701
